FAERS Safety Report 24647428 (Version 1)
Quarter: 2024Q4

REPORT INFORMATION
  Report Type: Spontaneous
  Country: US (occurrence: US)
  Receive Date: 20241121
  Receipt Date: 20241121
  Transmission Date: 20250114
  Serious: No
  Sender: ALVOGEN
  Company Number: US-ALVOGEN-2024095542

PATIENT
  Sex: Female

DRUGS (4)
  1. TERIPARATIDE [Suspect]
     Active Substance: TERIPARATIDE
     Indication: Osteoporosis
     Dosage: EXP. DATE: UU-JUN-2025, ONCE DAILY DOSE
     Dates: start: 202310
  2. TYLENOL [Concomitant]
     Active Substance: ACETAMINOPHEN
     Indication: Pain in extremity
     Dosage: TWICE A DAY, BEFORE TAKING TERIPARATIDE
  3. TYLENOL [Concomitant]
     Active Substance: ACETAMINOPHEN
     Indication: Pain in extremity
     Dosage: INCREASED TO THRICE A DAY
  4. TYLENOL [Concomitant]
     Active Substance: ACETAMINOPHEN
     Indication: Pain in extremity
     Dosage: EVENTUALLY 4 TIMES A DAY

REACTIONS (2)
  - Sciatica [Unknown]
  - Bone pain [Unknown]

NARRATIVE: CASE EVENT DATE: 20240401
